FAERS Safety Report 6483462-8 (Version None)
Quarter: 2009Q4

REPORT INFORMATION
  Report Type: 
  Country: None (occurrence: None)
  Receive Date: 20091123
  Receipt Date: 20090729
  Transmission Date: 20100525
  Serious: No
  Sender: FDA-Public Use
  Company Number: 8049697

PATIENT
  Age: 37 Year
  Sex: Female

DRUGS (4)
  1. CIMZIA [Suspect]
     Indication: CROHN'S DISEASE
     Dosage: 400 MG SC
     Route: 058
     Dates: start: 20081222, end: 20090630
  2. CIMZIA [Suspect]
  3. CIMZIA [Suspect]
  4. CIMZIA [Suspect]

REACTIONS (5)
  - DIARRHOEA [None]
  - FATIGUE [None]
  - GASTROINTESTINAL INFLAMMATION [None]
  - UPPER RESPIRATORY TRACT INFECTION [None]
  - WEIGHT DECREASED [None]
